FAERS Safety Report 10386056 (Version 1)
Quarter: 2014Q1

REPORT INFORMATION
  Report Type: Spontaneous
  Country: US (occurrence: None)
  Receive Date: 20140306
  Receipt Date: 20140306
  Transmission Date: 20141002
  Serious: Yes (Other)
  Sender: FDA-Public Use
  Company Number: 163-21880-13120364

PATIENT
  Age: 73 Year
  Sex: Male
  Weight: 86.64 kg

DRUGS (5)
  1. REVLIMID (LENALIDOMIDE) (15 MILLIGRAM, CAPSULES) [Suspect]
     Indication: PLASMA CELL MYELOMA
     Route: 048
     Dates: start: 20130123
  2. ASPIRIN(ACETYLSALICYLIC ACID) [Concomitant]
  3. DIPHENHYDRAMINE [Concomitant]
  4. POTASSIUM [Concomitant]
  5. ACETAMINOPHEN (PARACETAMOL) [Concomitant]

REACTIONS (1)
  - Neutrophil count decreased [None]
